FAERS Safety Report 13567206 (Version 1)
Quarter: 2017Q2

REPORT INFORMATION
  Report Type: Spontaneous
  Country: US (occurrence: US)
  Receive Date: 20170521
  Receipt Date: 20170521
  Transmission Date: 20170830
  Serious: No
  Sender: FDA-Public Use
  Company Number: None

PATIENT
  Age: 69 Year
  Sex: Female
  Weight: 81 kg

DRUGS (2)
  1. BABY ASPIRIN [Concomitant]
     Active Substance: ASPIRIN
  2. ISOSORBIDE MN ER 30 MG TABLET [Suspect]
     Active Substance: ISOSORBIDE MONONITRATE
     Indication: VASODILATATION
     Dosage: ?          QUANTITY:1 TABLET(S);?
     Route: 048

REACTIONS (5)
  - Dysgeusia [None]
  - Abnormal dreams [None]
  - Tongue discomfort [None]
  - Swollen tongue [None]
  - Gingival swelling [None]

NARRATIVE: CASE EVENT DATE: 20170503
